FAERS Safety Report 7477784-1 (Version None)
Quarter: 2011Q2

REPORT INFORMATION
  Report Type: 
  Country: None (occurrence: None)
  Receive Date: 20110513
  Receipt Date: 20110511
  Transmission Date: 20111010
  Serious: Yes (Hospitalization, Other)
  Sender: FDA-Public Use
  Company Number: US-ELI_LILLY_AND_COMPANY-US201002003678

PATIENT
  Sex: Male

DRUGS (7)
  1. BYETTA [Suspect]
     Dosage: UNK, UNKNOWN
     Route: 065
     Dates: start: 20080601, end: 20080731
  2. INSULIN [Concomitant]
     Indication: DIABETES MELLITUS
     Dates: start: 20040901
  3. TYLENOL                                 /SCH/ [Concomitant]
     Indication: HEADACHE
     Dates: start: 20080701
  4. ZESTRIL [Concomitant]
     Indication: CARDIAC DISORDER
     Dates: start: 20090501
  5. GLUCOPHAGE [Concomitant]
     Indication: DIABETES MELLITUS
     Dates: start: 20080901
  6. LEXAPRO [Concomitant]
     Indication: DEPRESSION
     Dates: start: 20080901
  7. PRAVASTATIN [Concomitant]
     Dates: start: 20080901

REACTIONS (2)
  - OFF LABEL USE [None]
  - PANCREATITIS [None]
